FAERS Safety Report 10215787 (Version 2)
Quarter: 2014Q2

REPORT INFORMATION
  Report Type: Spontaneous
  Country: FR (occurrence: FR)
  Receive Date: 20140604
  Receipt Date: 20140604
  Transmission Date: 20141212
  Serious: Yes (Hospitalization)
  Sender: FDA-Public Use
  Company Number: PHHY2014FR062766

PATIENT
  Age: 32 Year
  Sex: Female

DRUGS (6)
  1. GILENYA [Suspect]
     Indication: MULTIPLE SCLEROSIS
     Route: 048
     Dates: start: 201307, end: 201402
  2. LIORESAL [Concomitant]
     Dosage: 25 MG, TID
  3. NEURONTIN [Concomitant]
     Dosage: 600 MG, TID
  4. MONOCRIXO [Concomitant]
  5. RIVOTRIL [Concomitant]
     Dosage: 15 DRP, TID
  6. DOMPERIDONE [Concomitant]

REACTIONS (3)
  - Tachycardia [Recovered/Resolved]
  - Palpitations [Recovered/Resolved]
  - Headache [Recovered/Resolved]
